FAERS Safety Report 8835710 (Version 1)
Quarter: 2012Q4

REPORT INFORMATION
  Report Type: 
  Country: US (occurrence: US)
  Receive Date: 20121011
  Receipt Date: 20121011
  Transmission Date: 20130627
  Serious: Yes (Other)
  Sender: FDA-Public Use
  Company Number: US-PFIZER INC-2012249533

PATIENT
  Age: 83 Year
  Sex: Female
  Weight: 69.39 kg

DRUGS (5)
  1. PRISTIQ [Suspect]
     Dosage: 50 mg, 1x/day (daily)
     Route: 048
     Dates: start: 2012
  2. FOLIC ACID [Concomitant]
     Dosage: UNK
  3. TOPROL XL [Concomitant]
     Dosage: 50 mg, UNK
  4. K-DUR [Concomitant]
     Dosage: 10 mEq, 1x/day (daily)
  5. INDAPAMIDE [Concomitant]
     Dosage: 2.5 mg, 1x/day (daily)

REACTIONS (7)
  - Hypertension [Unknown]
  - Dyspnoea [Unknown]
  - Palpitations [Unknown]
  - Dizziness [Unknown]
  - Blood cholesterol abnormal [Unknown]
  - Abnormal behaviour [Unknown]
  - Crying [Unknown]
